FAERS Safety Report 15489574 (Version 1)
Quarter: 2018Q4

REPORT INFORMATION
  Report Type: Report from Study
  Country: TH (occurrence: TH)
  Receive Date: 20181011
  Receipt Date: 20181011
  Transmission Date: 20190205
  Serious: Yes (Hospitalization)
  Sender: FDA-Public Use
  Company Number: TH-CUMBERLAND PHARMACEUTICALS INC.-2055934

PATIENT
  Age: 68 Year
  Sex: Female

DRUGS (1)
  1. KRISTALOSE [Suspect]
     Active Substance: LACTULOSE
     Indication: CONSTIPATION

REACTIONS (1)
  - Proctitis [Recovered/Resolved]
